FAERS Safety Report 22071436 (Version 1)
Quarter: 2023Q1

REPORT INFORMATION
  Report Type: Spontaneous
  Country: GB (occurrence: GB)
  Receive Date: 20230307
  Receipt Date: 20230307
  Transmission Date: 20230417
  Serious: Yes (Other)
  Sender: FDA-Public Use
  Company Number: GB-MHRA-MED-202303031108304690-NMLHJ

PATIENT
  Age: 71 Year
  Sex: Male

DRUGS (10)
  1. PAXLOVID [Suspect]
     Active Substance: NIRMATRELVIR\RITONAVIR
     Indication: COVID-19
     Dosage: 2 DF, 2X/DAY (TWO TABLETS IN THE MORNING AND TWO TABLETS IN THE EVENING)
     Dates: start: 20230301, end: 20230303
  2. CREON [Concomitant]
     Active Substance: PANCRELIPASE AMYLASE\PANCRELIPASE LIPASE\PANCRELIPASE PROTEASE
  3. FELODIPINE [Concomitant]
     Active Substance: FELODIPINE
  4. HUMALOG [Concomitant]
     Active Substance: INSULIN LISPRO
  5. LANSOPRAZOLE [Concomitant]
     Active Substance: LANSOPRAZOLE
  6. LOSARTAN [Concomitant]
     Active Substance: LOSARTAN
  7. PRAVASTATIN [Concomitant]
     Active Substance: PRAVASTATIN
  8. PREDNISOLONE [Concomitant]
     Active Substance: PREDNISOLONE
  9. RITUXIMAB [Concomitant]
     Active Substance: RITUXIMAB
  10. TOUJEO [Concomitant]
     Active Substance: INSULIN GLARGINE

REACTIONS (4)
  - Syncope [Recovered/Resolved]
  - Delirium [Recovered/Resolved]
  - Diarrhoea [Not Recovered/Not Resolved]
  - Dysgeusia [Not Recovered/Not Resolved]

NARRATIVE: CASE EVENT DATE: 20230301
